FAERS Safety Report 18757418 (Version 1)
Quarter: 2021Q1

REPORT INFORMATION
  Report Type: Spontaneous
  Country: FR (occurrence: FR)
  Receive Date: 20210119
  Receipt Date: 20210119
  Transmission Date: 20210419
  Serious: Yes (Hospitalization)
  Sender: FDA-Public Use
  Company Number: FR-TEVA-2021-FR-1869479

PATIENT
  Age: 56 Year
  Sex: Male
  Weight: 64.6 kg

DRUGS (11)
  1. ALDACTAZINE [Suspect]
     Active Substance: ALTHIAZIDE\SPIRONOLACTONE
     Indication: PRODUCT USED FOR UNKNOWN INDICATION
     Dosage: 1 DF
     Route: 048
     Dates: end: 20201219
  2. SPECIAFOLDINE [Concomitant]
     Active Substance: FOLIC ACID
  3. CELLCEPT [Suspect]
     Active Substance: MYCOPHENOLATE MOFETIL\MYCOPHENOLATE MOFETIL HYDROCHLORIDE
     Indication: RENAL TRANSPLANT
     Dosage: 2 G
     Route: 048
     Dates: start: 2009, end: 20201219
  4. LASILIX [Concomitant]
     Active Substance: FUROSEMIDE
  5. VIAGRA [Concomitant]
     Active Substance: SILDENAFIL CITRATE
  6. TWYNSTA [Concomitant]
     Active Substance: AMLODIPINE BESYLATE\TELMISARTAN
  7. ALLOPURINOL. [Suspect]
     Active Substance: ALLOPURINOL
     Indication: GOUT
     Dosage: 100 G
     Route: 048
     Dates: start: 202010, end: 20201219
  8. COLCHIMAX, COMPRIME PELLICULE [Suspect]
     Active Substance: COLCHICINE\OPIUM\TIEMONIUM METHYLSULFATE
     Indication: GOUT
     Dosage: 0.5 DF
     Route: 048
     Dates: start: 202010, end: 20201219
  9. SOLUPRED [Concomitant]
  10. INIPOMP [Concomitant]
     Active Substance: PANTOPRAZOLE SODIUM
  11. PROGRAF [Concomitant]
     Active Substance: TACROLIMUS

REACTIONS (1)
  - Neutropenia [Recovered/Resolved]

NARRATIVE: CASE EVENT DATE: 202011
